FAERS Safety Report 10478909 (Version 1)
Quarter: 2014Q3

REPORT INFORMATION
  Report Type: Spontaneous
  Country: DE (occurrence: DE)
  Receive Date: 20140926
  Receipt Date: 20140926
  Transmission Date: 20150326
  Serious: Yes (Life-Threatening, Hospitalization, Other)
  Sender: FDA-Public Use
  Company Number: DE-TAKEDA-2014TUS009201

PATIENT
  Age: 67 Year
  Sex: Male

DRUGS (6)
  1. DICLO KD [Suspect]
     Active Substance: DICLOFENAC SODIUM
     Indication: PRODUCT USED FOR UNKNOWN INDICATION
     Dosage: 75 MG, UNK
     Route: 048
     Dates: start: 2011
  2. ADENURIC [Suspect]
     Active Substance: FEBUXOSTAT
     Indication: GOUT
     Dosage: 80 MG, UNK
     Route: 048
     Dates: start: 20140425, end: 20140626
  3. METOBETA [Concomitant]
     Dosage: 200 MG, UNK
     Dates: start: 2011
  4. ENALAPRIL HCT [Concomitant]
     Active Substance: ENALAPRIL\HYDROCHLOROTHIAZIDE
     Dosage: 20/12.5 MG, UNK
     Dates: start: 2011
  5. TORASEMID [Concomitant]
     Active Substance: TORSEMIDE
     Dosage: 20 MG, UNK
     Dates: start: 2011
  6. DURAZEPAM [Concomitant]
     Indication: SLEEP DISORDER
     Dosage: 10 MG, UNK
     Dates: start: 2011

REACTIONS (3)
  - Blood creatinine increased [Unknown]
  - Anaphylactic reaction [Recovered/Resolved]
  - C-reactive protein increased [Unknown]

NARRATIVE: CASE EVENT DATE: 20140626
